FAERS Safety Report 5909194-X (Version None)
Quarter: 2008Q4

REPORT INFORMATION
  Report Type: 
  Country: None (occurrence: None)
  Receive Date: 20081006
  Receipt Date: 20080929
  Transmission Date: 20090506
  Serious: Yes (Other)
  Sender: FDA-Public Use
  Company Number: PHHY2008BR23191

PATIENT
  Sex: Female
  Weight: 64 kg

DRUGS (4)
  1. FORASEQ [Suspect]
     Dosage: UNK
     Dates: start: 20000101
  2. SUSTRATE [Concomitant]
     Dosage: UNK
     Dates: start: 20040601
  3. FUROSEMIDE [Concomitant]
     Dosage: UNK
     Dates: start: 20040601
  4. PREDNISOLONE [Concomitant]
     Dosage: UNK
     Dates: start: 20041101

REACTIONS (2)
  - CHRONIC OBSTRUCTIVE PULMONARY DISEASE [None]
  - ECHOCARDIOGRAM ABNORMAL [None]
